FAERS Safety Report 5988586-7 (Version None)
Quarter: 2008Q4

REPORT INFORMATION
  Report Type: 
  Country: None (occurrence: None)
  Receive Date: 20081204
  Receipt Date: 20081124
  Transmission Date: 20090506
  Serious: Yes (Hospitalization)
  Sender: FDA-Public Use
  Company Number: 20559

PATIENT
  Age: 67 Year
  Sex: Female

DRUGS (3)
  1. CYTARABINE [Suspect]
     Indication: ACUTE MYELOID LEUKAEMIA
     Dosage: 20 MG/M2 QD SC
     Route: 058
     Dates: start: 20081010, end: 20081019
  2. ALLOPURINOL [Concomitant]
  3. CEFEPIME [Concomitant]

REACTIONS (1)
  - NEUTROPENIA [None]
